FAERS Safety Report 14843689 (Version 2)
Quarter: 2018Q2

REPORT INFORMATION
  Report Type: Spontaneous
  Country: FR (occurrence: FR)
  Receive Date: 20180503
  Receipt Date: 20180525
  Transmission Date: 20180711
  Serious: Yes (Life-Threatening, Hospitalization, Other)
  Sender: FDA-Public Use
  Company Number: PHHY2015FR177786

PATIENT
  Age: 59 Year
  Sex: Female

DRUGS (8)
  1. LORAZEPAM. [Suspect]
     Active Substance: LORAZEPAM
     Indication: PRODUCT USED FOR UNKNOWN INDICATION
     Dosage: 67.5 MG, ONCE/SINGLE, ONE TIME DOSE
     Route: 065
  2. ARIPIPRAZOLE. [Suspect]
     Active Substance: ARIPIPRAZOLE
     Indication: PRODUCT USED FOR UNKNOWN INDICATION
     Dosage: 105 MG, ONCE/SINGLE, ONE TIME DOSE
     Route: 065
  3. TEMESTA (LORAZEPAM) [Suspect]
     Active Substance: LORAZEPAM
     Indication: PRODUCT USED FOR UNKNOWN INDICATION
     Dosage: 67.5 MG, ONCE/SINGLE, ONE-TIME DOSE
     Route: 065
  4. TEMESTA (LORAZEPAM) [Suspect]
     Active Substance: LORAZEPAM
     Dosage: 105 MG, DOSE INGESTED
     Route: 048
  5. TEMESTA (LORAZEPAM) [Suspect]
     Active Substance: LORAZEPAM
     Dosage: 67.5 MG, ONCE/SINGLE
     Route: 065
  6. TEMESTA (LORAZEPAM) [Suspect]
     Active Substance: LORAZEPAM
     Dosage: 67.5 MG, DOSE INGESTED, 15 MG
     Route: 065
  7. CLOMIPRAMINE [Suspect]
     Active Substance: CLOMIPRAMINE
     Indication: PRODUCT USED FOR UNKNOWN INDICATION
     Dosage: 750 MG, ONCE/SINGLE, ONE TIME DOSE
     Route: 048
  8. TERCIAN [Suspect]
     Active Substance: CYAMEMAZINE
     Indication: PRODUCT USED FOR UNKNOWN INDICATION
     Dosage: 1625 MG, ONCE/SINGLE, ONE TIME DOSE
     Route: 048

REACTIONS (3)
  - Electrocardiogram abnormal [Recovered/Resolved]
  - Intentional overdose [Recovered/Resolved]
  - Coma [Recovered/Resolved]

NARRATIVE: CASE EVENT DATE: 20150616
